FAERS Safety Report 5962474-4 (Version None)
Quarter: 2008Q4

REPORT INFORMATION
  Report Type: 
  Country: None (occurrence: None)
  Receive Date: 20081121
  Receipt Date: 20081110
  Transmission Date: 20090506
  Serious: Yes (Death)
  Sender: FDA-Public Use
  Company Number: US-PFIZER INC-2008083671

PATIENT
  Age: 80 Year
  Sex: Female

DRUGS (6)
  1. AROMASIN [Suspect]
     Indication: BREAST CANCER
     Route: 048
     Dates: start: 20080501
  2. IMDUR [Concomitant]
     Dosage: DAILY DOSE:120MG-FREQ:DAILY
  3. COREG [Concomitant]
  4. LASIX [Concomitant]
     Dosage: DAILY DOSE:40MG-FREQ:DAILY
  5. KLOR-CON [Concomitant]
     Dosage: FREQ:DAILY
  6. SYNTHROID [Concomitant]
     Dosage: DAILY DOSE:100MCG-FREQ:DAILY

REACTIONS (1)
  - DISEASE PROGRESSION [None]
